FAERS Safety Report 25884416 (Version 2)
Quarter: 2025Q4

REPORT INFORMATION
  Report Type: Spontaneous
  Country: GB (occurrence: GB)
  Receive Date: 20251006
  Receipt Date: 20251013
  Transmission Date: 20260118
  Serious: Yes (Disabling, Other)
  Sender: PFIZER
  Company Number: GB-PFIZER INC-PV202500118414

PATIENT
  Age: 78 Year
  Sex: Male

DRUGS (4)
  1. TOBRAMYCIN [Suspect]
     Active Substance: TOBRAMYCIN
     Indication: Pseudomonas aeruginosa meningitis
     Dosage: UNK
     Dates: start: 202410, end: 202410
  2. TOBRAMYCIN [Suspect]
     Active Substance: TOBRAMYCIN
     Indication: Encephalitis bacterial
  3. MEROPENEM [Concomitant]
     Active Substance: MEROPENEM
     Indication: Encephalitis bacterial
     Dosage: 2 G, 3X/DAY
     Dates: start: 202410
  4. MEROPENEM [Concomitant]
     Active Substance: MEROPENEM
     Indication: Pseudomonas aeruginosa meningitis

REACTIONS (1)
  - Hypoacusis [Unknown]

NARRATIVE: CASE EVENT DATE: 20241001
